FAERS Safety Report 6409585-7 (Version None)
Quarter: 2009Q4

REPORT INFORMATION
  Report Type: 
  Country: None (occurrence: None)
  Receive Date: 20091020
  Receipt Date: 20091020
  Transmission Date: 20100525
  Serious: Yes (Other)
  Sender: FDA-Public Use
  Company Number: None

PATIENT
  Age: 50 Year
  Sex: Female
  Weight: 72.5755 kg

DRUGS (2)
  1. DOXYCYCLINE HYCLATE [Suspect]
     Indication: LOCALISED INFECTION
     Dosage: 100 MG 2X DAILY ORALLY
     Route: 048
     Dates: start: 20090619, end: 20090628
  2. DOXYCYCLINE HYCLATE [Suspect]

REACTIONS (8)
  - BLISTER [None]
  - BURNING SENSATION [None]
  - DOCUMENTED HYPERSENSITIVITY TO ADMINISTERED DRUG [None]
  - HALLUCINATION [None]
  - HYPERAESTHESIA [None]
  - PAIN [None]
  - PANIC ATTACK [None]
  - RASH [None]
